FAERS Safety Report 16508177 (Version 1)
Quarter: 2019Q3

REPORT INFORMATION
  Report Type: Spontaneous
  Country: US (occurrence: US)
  Receive Date: 20190520
  Receipt Date: 20190520
  Transmission Date: 20191004
  Serious: Yes (Other)
  Sender: FDA-Public Use
  Company Number: None

PATIENT
  Age: 47 Year
  Sex: Female
  Weight: 72.57 kg

DRUGS (3)
  1. CLONAZEPAM. [Concomitant]
     Active Substance: CLONAZEPAM
  2. ALPRAZOLAM. [Concomitant]
     Active Substance: ALPRAZOLAM
  3. CLONAZEPAM 1MG TAB ^PUREPAC^ [Suspect]
     Active Substance: CLONAZEPAM
     Indication: INSOMNIA
     Dosage: ?          QUANTITY:1 MG MILLIGRAM(S);?
     Route: 048
     Dates: start: 20190402, end: 20190403

REACTIONS (3)
  - Syncope [None]
  - Dizziness [None]
  - Asthenia [None]

NARRATIVE: CASE EVENT DATE: 20190402
